FAERS Safety Report 21203387 (Version 2)
Quarter: 2022Q3

REPORT INFORMATION
  Report Type: Spontaneous
  Country: US (occurrence: US)
  Receive Date: 20220811
  Receipt Date: 20220901
  Transmission Date: 20221026
  Serious: No
  Sender: FDA-Public Use
  Company Number: US-PFIZER INC-202201050004

PATIENT
  Sex: Male

DRUGS (1)
  1. DOXYCYCLINE HYCLATE [Suspect]
     Active Substance: DOXYCYCLINE HYCLATE
     Indication: Infection
     Dosage: TWICE A DAY FOR 7DAYS
     Dates: start: 20220723, end: 20220730

REACTIONS (4)
  - Rash macular [Unknown]
  - Burning sensation [Unknown]
  - Photosensitivity reaction [Unknown]
  - Sunburn [Unknown]
